FAERS Safety Report 5393807-8 (Version None)
Quarter: 2007Q3

REPORT INFORMATION
  Report Type: 
  Country: None (occurrence: None)
  Receive Date: 20070723
  Receipt Date: 20070713
  Transmission Date: 20080115
  Serious: Yes (Other)
  Sender: FDA-Public Use
  Company Number: SE-AVENTIS-200713514EU

PATIENT
  Age: 56 Year
  Sex: Female

DRUGS (41)
  1. ENOXAPARIN SODIUM [Suspect]
     Route: 058
     Dates: start: 20060814, end: 20060828
  2. PLACEBO [Suspect]
     Route: 048
     Dates: start: 20060815, end: 20060918
  3. MARCAINE                           /00330101/ [Concomitant]
     Dates: start: 20060815, end: 20060818
  4. MORPHINE [Concomitant]
     Dates: start: 20060815, end: 20060815
  5. PROPOFOL [Concomitant]
     Dates: start: 20060815, end: 20060815
  6. MIDAZOLAM HCL [Concomitant]
     Indication: ANXIETY
     Dates: start: 20060815, end: 20060815
  7. PROMITEN                           /00134201/ [Concomitant]
     Dates: start: 20060815, end: 20060815
  8. CLOXACILLIN SODIUM [Concomitant]
     Indication: INFECTION PROPHYLAXIS
     Dates: start: 20060815, end: 20060815
  9. CYKLOKAPRON [Concomitant]
     Indication: HAEMORRHAGE PROPHYLAXIS
     Dates: start: 20060815, end: 20060815
  10. MORPHINE [Concomitant]
     Dates: start: 20060815, end: 20060815
  11. PRIMPERAN                          /00041901/ [Concomitant]
     Indication: NAUSEA
     Dates: start: 20060815, end: 20060815
  12. ZOFRAN [Concomitant]
     Indication: NAUSEA
     Dates: start: 20060815, end: 20060815
  13. ZOFRAN [Concomitant]
     Dates: start: 20060816, end: 20060816
  14. ZOFRAN [Concomitant]
     Dates: start: 20060818, end: 20060818
  15. ZOFRAN [Concomitant]
     Dates: start: 20060820, end: 20060820
  16. ENALAPRIL MALEATE [Concomitant]
     Indication: HYPERTENSION
     Dates: start: 20060301
  17. ENALAPRIL MALEATE [Concomitant]
     Dates: start: 20060401
  18. RANITIDINE [Concomitant]
     Indication: GASTRITIS
     Dates: start: 20060401
  19. VOLTAREN [Concomitant]
     Indication: PAIN
     Dates: start: 20051201, end: 20060811
  20. TIPAROL [Concomitant]
     Indication: PAIN
     Dates: start: 20060401, end: 20060815
  21. TIPAROL [Concomitant]
     Dates: start: 20060816, end: 20060818
  22. KETOGAN                            /00129101/ [Concomitant]
     Indication: PAIN
     Dates: start: 20060816, end: 20060816
  23. ZOFRAN [Concomitant]
     Dates: start: 20060816, end: 20060820
  24. OXYNORM [Concomitant]
     Indication: PAIN
     Dates: start: 20060716, end: 20060816
  25. ZOPIKLON [Concomitant]
     Indication: INSOMNIA
     Dates: start: 20060816, end: 20060816
  26. LACTULOSE [Concomitant]
     Indication: CONSTIPATION
     Dates: start: 20060817, end: 20060817
  27. ACETAMINOPHEN [Concomitant]
     Indication: PAIN
     Dates: start: 20060814, end: 20060814
  28. ACETAMINOPHEN [Concomitant]
     Dates: start: 20060815, end: 20061009
  29. ACETAMINOPHEN [Concomitant]
     Dates: start: 20061010
  30. POSTAFEN                           /00072801/ [Concomitant]
     Indication: NAUSEA
     Dates: start: 20060814, end: 20060814
  31. POSTAFEN                           /00072801/ [Concomitant]
     Dates: start: 20060815, end: 20060815
  32. POSTAFEN                           /00072801/ [Concomitant]
     Dates: start: 20060815, end: 20060815
  33. DIKLOFENAK [Concomitant]
     Indication: PAIN
     Dates: start: 20060816
  34. DIKLOFENAK [Concomitant]
     Indication: INFLAMMATION
     Dates: start: 20060816
  35. TIPAROL [Concomitant]
     Dates: start: 20060816, end: 20060818
  36. TIPAROL [Concomitant]
     Dates: start: 20060819, end: 20060821
  37. TIPAROL [Concomitant]
     Dates: start: 20060822
  38. TIPAROL [Concomitant]
     Dates: start: 20060816, end: 20060818
  39. TIPAROL [Concomitant]
     Dates: start: 20060819, end: 20060821
  40. TIPAROL [Concomitant]
     Dates: start: 20060822
  41. CLOXACILLIN SODIUM [Concomitant]
     Dates: start: 20060815, end: 20060815

REACTIONS (2)
  - BLOOD AMYLASE INCREASED [None]
  - LIPASE INCREASED [None]
